FAERS Safety Report 12355399 (Version 1)
Quarter: 2016Q2

REPORT INFORMATION
  Report Type: Spontaneous
  Country: US (occurrence: US)
  Receive Date: 20160511
  Receipt Date: 20160511
  Transmission Date: 20160815
  Serious: Yes (Other)
  Sender: FDA-Public Use
  Company Number: US-ASTRAZENECA-2016SE49166

PATIENT
  Age: 58 Year
  Sex: Male

DRUGS (5)
  1. LISINOPRIL. [Suspect]
     Active Substance: LISINOPRIL
     Route: 048
  2. BYDUREON [Suspect]
     Active Substance: EXENATIDE
     Indication: TYPE 2 DIABETES MELLITUS
     Route: 065
  3. LIPITOR [Concomitant]
     Active Substance: ATORVASTATIN CALCIUM
  4. AMARYL [Concomitant]
     Active Substance: GLIMEPIRIDE
  5. METFORMIN [Concomitant]
     Active Substance: METFORMIN HYDROCHLORIDE

REACTIONS (1)
  - Pancreatitis [Unknown]
